FAERS Safety Report 9334720 (Version 1)
Quarter: 2013Q2

REPORT INFORMATION
  Report Type: Spontaneous
  Country: US (occurrence: US)
  Receive Date: 20130606
  Receipt Date: 20130606
  Transmission Date: 20140414
  Serious: No
  Sender: FDA-Public Use
  Company Number: US-AMGEN-USASP2013015475

PATIENT
  Age: 82 Year
  Sex: Female

DRUGS (8)
  1. PROLIA [Suspect]
     Indication: OSTEOPOROSIS POSTMENOPAUSAL
     Dosage: UNK
     Dates: start: 20120318
  2. VITAMIN C                          /00008001/ [Concomitant]
  3. FISH OIL [Concomitant]
  4. TYLENOL                            /00020001/ [Concomitant]
     Dosage: UNK UNK, AS NECESSARY
  5. SERTRALINE [Concomitant]
  6. KLOR-CON [Concomitant]
     Dosage: 10 MG, QD
  7. ALPRAZOLAM [Concomitant]
     Dosage: 0.5 MG, 1/2 TO 1 TABLET AS NEEDED
  8. CITRACAL + D                       /01438101/ [Concomitant]

REACTIONS (3)
  - Gastrooesophageal reflux disease [Unknown]
  - Rash [Unknown]
  - Pain in extremity [Unknown]
